FAERS Safety Report 6437901-9 (Version None)
Quarter: 2009Q4

REPORT INFORMATION
  Report Type: 
  Country: None (occurrence: None)
  Receive Date: 20091112
  Receipt Date: 20081230
  Transmission Date: 20100525
  Serious: No
  Sender: FDA-Public Use
  Company Number: US-ASTRAZENECA-2009UW18247

PATIENT
  Age: 57 Year
  Sex: Male

DRUGS (11)
  1. PRILOSEC OTC [Suspect]
     Indication: DYSPEPSIA
     Dosage: 1 TABLET, 1 /DAY FOR 40 DAYS
     Route: 048
     Dates: start: 20081120, end: 20081230
  2. PRILOSEC OTC [Suspect]
     Indication: OROPHARYNGEAL SPASM
     Dosage: 1 TABLET, 1 /DAY FOR 40 DAYS
     Route: 048
     Dates: start: 20081120, end: 20081230
  3. PRILOSEC OTC [Suspect]
     Indication: GASTROOESOPHAGEAL REFLUX DISEASE
     Dosage: 1 TABLET, 1 /DAY FOR 40 DAYS
     Route: 048
     Dates: start: 20081120, end: 20081230
  4. PRILOSEC OTC [Suspect]
  5. PRILOSEC OTC [Suspect]
  6. PRILOSEC OTC [Suspect]
  7. GEMFIBROZIL [Concomitant]
     Dosage: UNKNOWN
  8. ASPIRIN [Concomitant]
     Dosage: UNKNOWN
  9. FLEXERIL [Concomitant]
     Dosage: UNKNOWN
  10. ALEVE [Concomitant]
     Dosage: UNKNOWN
  11. HYDROCODONE [Concomitant]
     Dosage: UNKNOWN

REACTIONS (2)
  - DRUG INEFFECTIVE [None]
  - INCORRECT DRUG ADMINISTRATION DURATION [None]
